FAERS Safety Report 11499524 (Version 3)
Quarter: 2015Q4

REPORT INFORMATION
  Report Type: Spontaneous
  Country: FR (occurrence: FR)
  Receive Date: 20150914
  Receipt Date: 20151001
  Transmission Date: 20160304
  Serious: Yes (Hospitalization)
  Sender: FDA-Public Use
  Company Number: FR-ROCHE-1632625

PATIENT
  Age: 68 Year
  Sex: Male

DRUGS (8)
  1. VINCRISTINE SULFATE. [Suspect]
     Active Substance: VINCRISTINE SULFATE
     Indication: LYMPHOMA
     Dosage: 4 CYCLES FROM APRIL 2012 TO SEPTEMBER 2012
     Route: 042
  2. FLUDARABINE PHOSPHATE. [Suspect]
     Active Substance: FLUDARABINE PHOSPHATE
     Indication: LYMPHOMA
     Dosage: 1 CYCLE IN SEPTEMBER 2012
     Route: 042
  3. PREDNISONE. [Suspect]
     Active Substance: PREDNISONE
     Indication: LYMPHOMA
     Dosage: 4 CYCLES FROM APRIL 2012 TO SEPTEMBER 2012
     Route: 042
  4. PREVISCAN (FRANCE) [Suspect]
     Active Substance: FLUINDIONE
     Indication: ATRIAL FIBRILLATION
     Dosage: 2 DOSES IN THE EVENING
     Route: 048
  5. INEXIUM [Suspect]
     Active Substance: ESOMEPRAZOLE
     Indication: GASTROOESOPHAGEAL REFLUX DISEASE
     Route: 048
  6. ADRIBLASTINE [Suspect]
     Active Substance: DOXORUBICIN
     Indication: LYMPHOMA
     Dosage: 4 CYCLES FROM APRIL 2012 TO SEPTEMBER 2012
     Route: 042
  7. MABTHERA [Suspect]
     Active Substance: RITUXIMAB
     Indication: LYMPHOMA
     Dosage: 6 CYCLES FROM APRIL 2012 TO SEPTEMBER 2012
     Route: 042
  8. ENDOXAN [Suspect]
     Active Substance: CYCLOPHOSPHAMIDE
     Indication: LYMPHOMA
     Dosage: 7 CYCLES FROM APRIL 2012 TO SEPTEMBER 2012
     Route: 042

REACTIONS (1)
  - Retroperitoneal fibrosis [Not Recovered/Not Resolved]

NARRATIVE: CASE EVENT DATE: 201309
